FAERS Safety Report 7892884-X (Version None)
Quarter: 2011Q4

REPORT INFORMATION
  Report Type: 
  Country: None (occurrence: None)
  Receive Date: 20111104
  Receipt Date: 20111027
  Transmission Date: 20120403
  Serious: Yes (Hospitalization)
  Sender: FDA-Public Use
  Company Number: FR-SANOFI-AVENTIS-2011SA070679

PATIENT
  Age: 68 Year
  Sex: Female

DRUGS (10)
  1. MYAMBUTOL [Suspect]
     Route: 048
     Dates: start: 20101120, end: 20110102
  2. COLCHICINE [Concomitant]
     Indication: GOUT
     Route: 048
     Dates: start: 20100101, end: 20110102
  3. ALLOPURINOL [Concomitant]
     Indication: GOUT
     Route: 048
     Dates: start: 20100101, end: 20110102
  4. ROCEPHIN [Concomitant]
     Indication: CHOLECYSTECTOMY
     Dates: start: 20101222, end: 20110102
  5. MYAMBUTOL [Suspect]
     Route: 048
     Dates: start: 20110102, end: 20110114
  6. OMEPRAZOLE [Concomitant]
     Route: 048
  7. AMILORIDE HCL AND HYDROCHLOROTHIAZIDE [Concomitant]
     Route: 048
     Dates: end: 20110102
  8. FLAGYL [Concomitant]
     Indication: CHOLECYSTECTOMY
     Dates: start: 20101222, end: 20110102
  9. RIFATER [Suspect]
     Route: 048
     Dates: start: 20101120, end: 20110102
  10. EFFEXOR [Concomitant]
     Route: 048

REACTIONS (16)
  - RECTAL HAEMORRHAGE [None]
  - CYTOMEGALOVIRUS INFECTION [None]
  - PULMONARY EMBOLISM [None]
  - LIPASE INCREASED [None]
  - EOSINOPHILIA [None]
  - FACE OEDEMA [None]
  - RENAL FAILURE [None]
  - HAEMOGLOBIN DECREASED [None]
  - SKIN LESION [None]
  - CYTOLYTIC HEPATITIS [None]
  - PROTHROMBIN TIME PROLONGED [None]
  - PRURITUS [None]
  - CHOLELITHIASIS [None]
  - HAEMATEMESIS [None]
  - DRUG RASH WITH EOSINOPHILIA AND SYSTEMIC SYMPTOMS [None]
  - ISCHAEMIC STROKE [None]
